FAERS Safety Report 4647517-2 (Version None)
Quarter: 2005Q2

REPORT INFORMATION
  Report Type: 
  Country: None (occurrence: None)
  Receive Date: 20050428
  Receipt Date: 20040423
  Transmission Date: 20051028
  Serious: Yes (Hospitalization)
  Sender: FDA-Public Use
  Company Number: FR-ROCHE-365344

PATIENT
  Age: 56 Year
  Sex: Female

DRUGS (7)
  1. ROFERON-A [Suspect]
     Route: 065
     Dates: start: 19990115, end: 19990515
  2. ROFERON-A [Suspect]
     Route: 065
     Dates: start: 19990924, end: 19991114
  3. ROFERON-A [Suspect]
     Route: 065
     Dates: start: 20000115, end: 20010115
  4. GLEEVEC [Suspect]
     Indication: DRUG USE FOR UNKNOWN INDICATION
     Route: 048
     Dates: start: 20011002
  5. GLEEVEC [Suspect]
     Dosage: DOSAGE DECREASED TO 600 MG DAILY
     Route: 048
     Dates: start: 20041115
  6. HYDREA [Suspect]
     Indication: DRUG USE FOR UNKNOWN INDICATION
     Route: 065
     Dates: start: 19990515, end: 20010915
  7. INTERFERON [Concomitant]
     Dates: start: 19980915, end: 19980915

REACTIONS (6)
  - CONSTIPATION [None]
  - NEOPLASM [None]
  - NEOPLASM OF APPENDIX [None]
  - OVARIAN NEOPLASM [None]
  - PSEUDOMYXOMA PERITONEI [None]
  - TREATMENT NONCOMPLIANCE [None]
